FAERS Safety Report 10187560 (Version 1)
Quarter: 2014Q2

REPORT INFORMATION
  Report Type: Spontaneous
  Country: US (occurrence: US)
  Receive Date: 20140522
  Receipt Date: 20140522
  Transmission Date: 20141212
  Serious: No
  Sender: FDA-Public Use
  Company Number: US-SANOFI-AVENTIS-2013SA083607

PATIENT
  Age: 60 Year
  Sex: Female

DRUGS (3)
  1. LANTUS [Suspect]
     Indication: TYPE 2 DIABETES MELLITUS
     Dosage: START DATE -- 2007 DOSE:90 UNIT(S)
     Route: 051
  2. METFORMIN [Suspect]
     Route: 065
  3. NPH INSULIN [Suspect]
     Route: 065

REACTIONS (2)
  - Nasal congestion [Unknown]
  - Abdominal pain [Unknown]
